FAERS Safety Report 9248590 (Version 2)
Quarter: 2013Q2

REPORT INFORMATION
  Report Type: Spontaneous
  Country: US (occurrence: US)
  Receive Date: 20130423
  Receipt Date: 20130501
  Transmission Date: 20140414
  Serious: Yes (Hospitalization)
  Sender: FDA-Public Use
  Company Number: US-ELI_LILLY_AND_COMPANY-US201304003449

PATIENT
  Sex: Female

DRUGS (7)
  1. CYMBALTA [Suspect]
     Indication: PAIN
     Dosage: 30 MG, UNK
     Dates: start: 201210
  2. CYMBALTA [Suspect]
     Dosage: 60 MG, UNK
  3. CYMBALTA [Suspect]
     Dosage: 120 MG, UNK
     Dates: end: 20130401
  4. VICODIN [Concomitant]
     Indication: PAIN
  5. WELLBUTRIN [Concomitant]
     Dosage: 150 MG, UNK
  6. WELLBUTRIN [Concomitant]
     Dosage: 300 MG, UNK
  7. WELLBUTRIN [Concomitant]
     Dosage: 450 MG, UNK

REACTIONS (6)
  - Depression [Unknown]
  - Mania [Unknown]
  - Pain [Unknown]
  - Anxiety [Unknown]
  - Memory impairment [Unknown]
  - Drug ineffective [Unknown]
